FAERS Safety Report 8850919 (Version 1)
Quarter: 2012Q4

REPORT INFORMATION
  Report Type: 
  Country: US (occurrence: US)
  Receive Date: 20121019
  Receipt Date: 20121019
  Transmission Date: 20130627
  Serious: No
  Sender: FDA-Public Use
  Company Number: US-PFIZER INC-2012257164

PATIENT
  Age: 32 Year
  Sex: Male
  Weight: 86.17 kg

DRUGS (1)
  1. ZITHROMAX [Suspect]
     Indication: BETA HAEMOLYTIC STREPTOCOCCAL INFECTION
     Dosage: 1000 mg, single
     Route: 048
     Dates: start: 201106, end: 201106

REACTIONS (1)
  - Bacterial test positive [Unknown]
